FAERS Safety Report 25758872 (Version 1)
Quarter: 2025Q3

REPORT INFORMATION
  Report Type: Spontaneous
  Country: CN (occurrence: CN)
  Receive Date: 20250904
  Receipt Date: 20250904
  Transmission Date: 20251020
  Serious: Yes (Hospitalization, Other)
  Sender: BEIGENE
  Company Number: CN-BEIGENE-BGN-2025-014626

PATIENT
  Age: 20 Year
  Weight: 75 kg

DRUGS (16)
  1. BRUKINSA [Suspect]
     Active Substance: ZANUBRUTINIB
     Indication: Gastrointestinal lymphoma
     Dosage: 160 MILLIGRAM, BID
  2. BRUKINSA [Suspect]
     Active Substance: ZANUBRUTINIB
     Dosage: 160 MILLIGRAM, BID
     Route: 048
  3. BRUKINSA [Suspect]
     Active Substance: ZANUBRUTINIB
     Dosage: 160 MILLIGRAM, BID
     Route: 048
  4. BRUKINSA [Suspect]
     Active Substance: ZANUBRUTINIB
     Dosage: 160 MILLIGRAM, BID
  5. RIVAROXABAN [Suspect]
     Active Substance: RIVAROXABAN
     Indication: Anticoagulant therapy
  6. RIVAROXABAN [Suspect]
     Active Substance: RIVAROXABAN
     Route: 048
  7. RIVAROXABAN [Suspect]
     Active Substance: RIVAROXABAN
     Route: 048
  8. RIVAROXABAN [Suspect]
     Active Substance: RIVAROXABAN
  9. RITUXIMAB [Suspect]
     Active Substance: RITUXIMAB
     Indication: Gastrointestinal lymphoma
  10. RITUXIMAB [Suspect]
     Active Substance: RITUXIMAB
     Route: 041
  11. RITUXIMAB [Suspect]
     Active Substance: RITUXIMAB
     Route: 041
  12. RITUXIMAB [Suspect]
     Active Substance: RITUXIMAB
  13. LENALIDOMIDE [Suspect]
     Active Substance: LENALIDOMIDE
     Indication: Gastrointestinal lymphoma
  14. LENALIDOMIDE [Suspect]
     Active Substance: LENALIDOMIDE
     Route: 048
  15. LENALIDOMIDE [Suspect]
     Active Substance: LENALIDOMIDE
     Route: 048
  16. LENALIDOMIDE [Suspect]
     Active Substance: LENALIDOMIDE

REACTIONS (4)
  - Upper gastrointestinal haemorrhage [Recovering/Resolving]
  - Haematemesis [Recovering/Resolving]
  - Syncope [Recovering/Resolving]
  - Haemoglobin decreased [Unknown]
